FAERS Safety Report 14844314 (Version 1)
Quarter: 2018Q2

REPORT INFORMATION
  Report Type: Spontaneous
  Country: US (occurrence: US)
  Receive Date: 20180503
  Receipt Date: 20180503
  Transmission Date: 20180711
  Serious: Yes (Other)
  Sender: FDA-Public Use
  Company Number: US-ABBVIE-18P-163-2337220-00

PATIENT
  Sex: Male

DRUGS (1)
  1. VENCLEXTA [Suspect]
     Active Substance: VENETOCLAX
     Indication: PRODUCT USED FOR UNKNOWN INDICATION
     Route: 048

REACTIONS (10)
  - Basal cell carcinoma [Not Recovered/Not Resolved]
  - Micrographic skin surgery [Unknown]
  - Drug dose omission [Unknown]
  - Squamous cell carcinoma [Not Recovered/Not Resolved]
  - Headache [Unknown]
  - Polydipsia [Unknown]
  - Dry skin [Unknown]
  - Platelet count decreased [Unknown]
  - Rash [Unknown]
  - Rash [Not Recovered/Not Resolved]
